FAERS Safety Report 4821030-1 (Version None)
Quarter: 2005Q4

REPORT INFORMATION
  Report Type: 
  Country: None (occurrence: None)
  Receive Date: 20051104
  Receipt Date: 20050615
  Transmission Date: 20060501
  Serious: Yes (Life-Threatening, Hospitalization)
  Sender: FDA-Public Use
  Company Number: 2005UW09177

PATIENT
  Age: 35 Year
  Sex: Male
  Weight: 94.1 kg

DRUGS (2)
  1. CRESTOR [Suspect]
     Indication: HYPERLIPIDAEMIA
     Route: 048
     Dates: start: 20050325, end: 20050601
  2. CRESTOR [Suspect]
     Indication: HYPERCHOLESTEROLAEMIA
     Route: 048
     Dates: start: 20050325, end: 20050601

REACTIONS (5)
  - HEPATITIS [None]
  - RENAL FAILURE [None]
  - RENAL FAILURE ACUTE [None]
  - RHABDOMYOLYSIS [None]
  - TRANSAMINASES INCREASED [None]
